FAERS Safety Report 7334164-7 (Version None)
Quarter: 2011Q1

REPORT INFORMATION
  Report Type: 
  Country: None (occurrence: None)
  Receive Date: 20110307
  Receipt Date: 20100104
  Transmission Date: 20110831
  Serious: No
  Sender: FDA-Public Use
  Company Number: US-BAYER-201010505NA

PATIENT
  Sex: Female

DRUGS (3)
  1. LEXAPRO [Concomitant]
     Indication: DEPRESSION
  2. MIRENA [Suspect]
     Indication: CONTRACEPTION
     Dosage: 20 MCG/24HR, CONT
     Route: 015
     Dates: start: 20091209
  3. IBUPROFEN [Concomitant]
     Indication: PAIN

REACTIONS (4)
  - IRRITABILITY [None]
  - PAIN IN EXTREMITY [None]
  - ABDOMINAL PAIN LOWER [None]
  - HEADACHE [None]
